FAERS Safety Report 5078814-7 (Version None)
Quarter: 2006Q3

REPORT INFORMATION
  Report Type: 
  Country: None (occurrence: None)
  Receive Date: 20060809
  Receipt Date: 20060802
  Transmission Date: 20061208
  Serious: Yes (Hospitalization)
  Sender: FDA-Public Use
  Company Number: CIP06001677

PATIENT
  Age: 74 Year
  Sex: Female

DRUGS (4)
  1. ACTONEL [Suspect]
     Indication: OSTEOPOROSIS
     Dosage: 35 MG ONCE WEEKLY, ORAL
     Route: 048
     Dates: start: 20040101
  2. ASPIRIN [Concomitant]
  3. UNIRETIC (HYDROCHLOROTHIAZIDE, MOEXIPRIL HYDROCHLORIDE) [Concomitant]
  4. MILK OF MAGNESIA TAB [Concomitant]

REACTIONS (1)
  - DUODENAL ULCER HAEMORRHAGE [None]
